FAERS Safety Report 16890101 (Version 1)
Quarter: 2019Q4

REPORT INFORMATION
  Report Type: Spontaneous
  Country: US (occurrence: US)
  Receive Date: 20191004
  Receipt Date: 20191004
  Transmission Date: 20200122
  Serious: Yes (Hospitalization)
  Sender: FDA-Public Use
  Company Number: None

PATIENT
  Age: 73 Year
  Sex: Male

DRUGS (5)
  1. IPRATROPIUM/ SOL ALBUTEROL [Concomitant]
     Active Substance: ALBUTEROL\IPRATROPIUM BROMIDE
  2. RETACRIT [Suspect]
     Active Substance: EPOETIN ALFA-EPBX
     Indication: ANAEMIA
     Dosage: ?          OTHER FREQUENCY:EVERY OTHER WEEK;?
     Route: 058
     Dates: start: 20190625
  3. COPAXONE 20 MG/ML SYR [Concomitant]
  4. WARFARIN TAB 1 MG [Concomitant]
  5. ROPINIROLE TAB 0.5 MG [Concomitant]

REACTIONS (1)
  - Urinary tract infection [None]

NARRATIVE: CASE EVENT DATE: 20190903
